FAERS Safety Report 9790550 (Version 3)
Quarter: 2014Q2

REPORT INFORMATION
  Report Type: Spontaneous
  Country: SE (occurrence: SE)
  Receive Date: 20131231
  Receipt Date: 20140501
  Transmission Date: 20141212
  Serious: Yes (Hospitalization)
  Sender: FDA-Public Use
  Company Number: SE-PFIZER INC-2013366014

PATIENT
  Age: 71 Year
  Sex: Female

DRUGS (4)
  1. TROMBYL [Suspect]
     Dosage: UNK
     Route: 065
  2. ATENOLOL [Suspect]
     Dosage: UNK
     Route: 065
  3. BRILIQUE [Suspect]
     Dosage: UNK
     Route: 048
  4. ATACAND [Suspect]
     Dosage: UNK
     Route: 048

REACTIONS (2)
  - Epistaxis [Unknown]
  - Hypotension [Unknown]
